FAERS Safety Report 15334988 (Version 1)
Quarter: 2018Q3

REPORT INFORMATION
  Report Type: Spontaneous
  Country: US (occurrence: US)
  Receive Date: 20180830
  Receipt Date: 20180830
  Transmission Date: 20181010
  Serious: No
  Sender: FDA-Public Use
  Company Number: US-BAYER-2018-159538

PATIENT
  Age: 71 Year
  Sex: Male
  Weight: 110.98 kg

DRUGS (8)
  1. PEPCID [Concomitant]
     Active Substance: FAMOTIDINE
     Dosage: 0.5 DF, UNK
     Route: 048
     Dates: start: 20180817
  2. ALEVE [Suspect]
     Active Substance: NAPROXEN SODIUM
     Indication: OCULAR HYPERAEMIA
  3. ALEVE [Suspect]
     Active Substance: NAPROXEN SODIUM
     Indication: UVEITIS
  4. ALEVE [Suspect]
     Active Substance: NAPROXEN SODIUM
     Indication: EYE PRURITUS
     Dosage: UNK
     Route: 048
  5. ALEVE [Suspect]
     Active Substance: NAPROXEN SODIUM
     Indication: OCULAR HYPERAEMIA
  6. ALEVE [Suspect]
     Active Substance: NAPROXEN SODIUM
     Indication: UVEITIS
  7. TRAMADOL. [Concomitant]
     Active Substance: TRAMADOL
     Indication: PAIN
     Dosage: UNK UNK, PRN
  8. ALEVE [Suspect]
     Active Substance: NAPROXEN SODIUM
     Indication: EYE PRURITUS
     Dosage: 1 DF, QD
     Route: 048

REACTIONS (2)
  - Product use in unapproved indication [Unknown]
  - Circumstance or information capable of leading to medication error [Unknown]
